FAERS Safety Report 4966549-8 (Version None)
Quarter: 2006Q2

REPORT INFORMATION
  Report Type: 
  Country: None (occurrence: None)
  Receive Date: 20060407
  Receipt Date: 20060403
  Transmission Date: 20061013
  Serious: Yes (Other)
  Sender: FDA-Public Use
  Company Number: US-JNJFOC-20060303145

PATIENT
  Sex: Female
  Weight: 65.77 kg

DRUGS (5)
  1. ARESTIN [Suspect]
     Indication: PERIODONTITIS
  2. PREMARIN [Concomitant]
  3. CARDIZEM [Concomitant]
  4. ZANTAC [Concomitant]
  5. TOPBRADEX [Concomitant]

REACTIONS (4)
  - GINGIVAL EROSION [None]
  - GINGIVAL HYPERTROPHY [None]
  - GINGIVAL ULCERATION [None]
  - GINGIVITIS [None]
